FAERS Safety Report 22070269 (Version 1)
Quarter: 2023Q1

REPORT INFORMATION
  Report Type: Spontaneous
  Country: US (occurrence: US)
  Receive Date: 20230307
  Receipt Date: 20230307
  Transmission Date: 20230418
  Serious: Yes (Other)
  Sender: FDA-Public Use
  Company Number: US-009507513-2303USA000093

PATIENT
  Age: 63 Year
  Sex: Female

DRUGS (3)
  1. KEYTRUDA [Suspect]
     Active Substance: PEMBROLIZUMAB
     Indication: Non-small cell lung cancer
     Dosage: 200 MILLIGRAM
     Dates: start: 20190307
  2. CARBOPLATIN [Concomitant]
     Active Substance: CARBOPLATIN
     Dosage: 505 MILLIGRAM
     Dates: start: 20190307
  3. PEMETREXED [Concomitant]
     Active Substance: PEMETREXED
     Dosage: 800 MILLIGRAM
     Dates: start: 20190307

REACTIONS (1)
  - Central nervous system vasculitis [Not Recovered/Not Resolved]

NARRATIVE: CASE EVENT DATE: 20190301
